FAERS Safety Report 20043163 (Version 1)
Quarter: 2021Q4

REPORT INFORMATION
  Report Type: Spontaneous
  Country: JP (occurrence: JP)
  Receive Date: 20211108
  Receipt Date: 20211108
  Transmission Date: 20220304
  Serious: Yes (Life-Threatening, Hospitalization, Other)
  Sender: FDA-Public Use
  Company Number: JP-MLMSERVICE-20211019-3166568-1

PATIENT
  Age: 40 Year
  Sex: Male
  Weight: 78 kg

DRUGS (5)
  1. FLUOROURACIL [Suspect]
     Active Substance: FLUOROURACIL
     Indication: Anal fistula
     Dosage: ON DAYS 1-4 AND 29-32
  2. MITOMYCIN [Suspect]
     Active Substance: MITOMYCIN
     Indication: Anal fistula
     Dosage: ON DAY 1, 29
  3. MESALAMINE [Concomitant]
     Active Substance: MESALAMINE
     Indication: Crohn^s disease
  4. INFLIXIMAB [Concomitant]
     Active Substance: INFLIXIMAB
     Indication: Crohn^s disease
  5. MESALAMINE [Concomitant]
     Active Substance: MESALAMINE
     Indication: Crohn^s disease

REACTIONS (9)
  - Anaemia [Recovered/Resolved]
  - Thrombocytopenia [Recovered/Resolved]
  - Proctalgia [Recovered/Resolved]
  - Ileus [Recovered/Resolved]
  - Decreased appetite [Recovered/Resolved]
  - Leukopenia [Recovered/Resolved]
  - Weight decreased [Recovered/Resolved]
  - Neutropenia [Recovered/Resolved]
  - Diarrhoea [Recovered/Resolved]
